FAERS Safety Report 19310765 (Version 1)
Quarter: 2021Q2

REPORT INFORMATION
  Report Type: Report from Study
  Country: US (occurrence: US)
  Receive Date: 20210526
  Receipt Date: 20210526
  Transmission Date: 20210717
  Serious: Yes (Other)
  Sender: FDA-Public Use
  Company Number: US-BAUSCH-BL-2021-018618

PATIENT
  Age: 81 Year
  Sex: Female
  Weight: 54.15 kg

DRUGS (14)
  1. DICLOFENAC [Concomitant]
     Active Substance: DICLOFENAC
     Indication: PRODUCT USED FOR UNKNOWN INDICATION
     Dosage: FILLED: 15/SEP/2020
     Route: 061
  2. MULTIVITAMIN 50 PLUS [Concomitant]
     Indication: PRODUCT USED FOR UNKNOWN INDICATION
     Dosage: ENTERED: 30/JUL/2019
     Route: 048
  3. TYLENOL [Concomitant]
     Active Substance: ACETAMINOPHEN
     Indication: PRODUCT USED FOR UNKNOWN INDICATION
     Dosage: STARTED: 22/JUL/2013; SWALLOW WHOLE WITH WATER
     Route: 048
  4. OMEPRAZOLE. [Concomitant]
     Active Substance: OMEPRAZOLE
     Indication: PRODUCT USED FOR UNKNOWN INDICATION
     Dosage: FILLED: 28/OCT/2020; EVERY MORNING
     Route: 048
  5. LACTULOSE. [Concomitant]
     Active Substance: LACTULOSE
     Indication: HEPATIC ENCEPHALOPATHY
     Route: 065
  6. GABAPENTIN. [Concomitant]
     Active Substance: GABAPENTIN
     Indication: PRODUCT USED FOR UNKNOWN INDICATION
     Dosage: TAKE 1?2; FILLED: 15/SEP/2020
     Route: 048
  7. CARVEDILOL. [Concomitant]
     Active Substance: CARVEDILOL
     Indication: PRODUCT USED FOR UNKNOWN INDICATION
     Dosage: FILLED: 27/NOV/2020
     Route: 048
  8. PREDNISONE. [Concomitant]
     Active Substance: PREDNISONE
     Indication: PRODUCT USED FOR UNKNOWN INDICATION
     Dosage: FILLED: 28/OCT/2020; DAILY
     Route: 048
  9. ASPIRIN 81 [Concomitant]
     Active Substance: ASPIRIN
     Indication: PRODUCT USED FOR UNKNOWN INDICATION
     Route: 048
     Dates: start: 20140131
  10. ENULOSE [Concomitant]
     Active Substance: LACTULOSE
     Indication: PRODUCT USED FOR UNKNOWN INDICATION
     Dosage: 10GM/15ML, 1 TABLESPOON (15 ML), EACH DAY; FILLED: 04/DEC/2020
     Route: 048
  11. FAMOTIDINE. [Concomitant]
     Active Substance: FAMOTIDINE
     Indication: PRODUCT USED FOR UNKNOWN INDICATION
     Dosage: PRESCRIBED: 13/APR/2020 (AS NEEDED FOR 90 DAYS)
     Route: 048
     Dates: start: 20200413
  12. MELATONIN [Concomitant]
     Active Substance: MELATONIN
     Indication: PRODUCT USED FOR UNKNOWN INDICATION
     Dosage: AT BEDTIME FOR 90 DAYS; PRESCRIBED ON 10/JUL/2020
     Route: 048
  13. VITAMIN D3 [Concomitant]
     Active Substance: CHOLECALCIFEROL
     Indication: PRODUCT USED FOR UNKNOWN INDICATION
     Dosage: STARTED: 17/MAR/2013
     Route: 048
  14. XIFAXAN [Suspect]
     Active Substance: RIFAXIMIN
     Indication: HEPATIC ENCEPHALOPATHY
     Dosage: RENEWED ON 03/DEC/2020
     Route: 048

REACTIONS (20)
  - Urinary retention [Unknown]
  - Asthenia [Unknown]
  - Pruritus [Unknown]
  - Polydipsia [Unknown]
  - Depression [Unknown]
  - Fatigue [Unknown]
  - Dyspnoea [Unknown]
  - Anxiety [Unknown]
  - Dyspepsia [Recovered/Resolved]
  - Diplopia [Unknown]
  - Nasal congestion [Unknown]
  - Haemorrhage [Unknown]
  - Diarrhoea [Unknown]
  - Sinus pain [Unknown]
  - Back pain [Unknown]
  - Blood urine present [Unknown]
  - Dysuria [Unknown]
  - Dizziness [Unknown]
  - Haematochezia [Unknown]
  - Insomnia [Unknown]
